FAERS Safety Report 6168879-3 (Version None)
Quarter: 2009Q2

REPORT INFORMATION
  Report Type: 
  Country: None (occurrence: None)
  Receive Date: 20090424
  Receipt Date: 20090424
  Transmission Date: 20091009
  Serious: Yes (Hospitalization)
  Sender: FDA-Public Use
  Company Number: None

PATIENT
  Age: 76 Year
  Sex: Female

DRUGS (1)
  1. ZOLPIDEM [Suspect]
     Dosage: ZOLPIDEM 5 MG AT BEDTIME PO
     Route: 048

REACTIONS (2)
  - ASTHENIA [None]
  - MENTAL STATUS CHANGES [None]
